FAERS Safety Report 8018493-X (Version None)
Quarter: 2012Q1

REPORT INFORMATION
  Report Type: 
  Country: None (occurrence: None)
  Receive Date: 20120103
  Receipt Date: 20111222
  Transmission Date: 20120608
  Serious: Yes (Hospitalization)
  Sender: FDA-Public Use
  Company Number: US-BAYER-2011-037931

PATIENT
  Age: 31 Year
  Sex: Female
  Weight: 71.655 kg

DRUGS (11)
  1. IMODIUM [Concomitant]
  2. IBUPROFEN [Concomitant]
     Dosage: UNK UNK, PRN
     Route: 048
     Dates: start: 20010101
  3. COUMADIN [Concomitant]
  4. ACETAMINOPHEN [Concomitant]
  5. DROSPIRENONE AND ETHINYL ESTRADIOL [Suspect]
     Indication: ORAL CONTRACEPTION
     Dosage: UNK
     Dates: start: 20090701, end: 20090901
  6. LEXAPRO [Concomitant]
     Indication: DEPRESSION
     Dosage: 10 MG, QD
     Route: 048
     Dates: start: 20040101
  7. CIPROFLOXACIN [Concomitant]
     Dosage: UNK
     Route: 048
     Dates: start: 20091001
  8. ELAVIL [Concomitant]
  9. YASMIN [Suspect]
     Indication: ORAL CONTRACEPTION
     Dosage: UNK
     Dates: start: 20090901, end: 20091001
  10. AMITRIPTYLINE HCL [Concomitant]
     Indication: ANXIETY
     Dosage: 10 MG, QD
     Route: 048
     Dates: start: 20090301, end: 20091001
  11. ALIGN PROBIOTIC [Concomitant]
     Dosage: UNK UNK, QD
     Route: 048

REACTIONS (8)
  - PAIN IN EXTREMITY [None]
  - ANHEDONIA [None]
  - PULMONARY EMBOLISM [None]
  - DYSPNOEA [None]
  - CHEST PAIN [None]
  - ANXIETY [None]
  - EMOTIONAL DISTRESS [None]
  - GENERAL PHYSICAL HEALTH DETERIORATION [None]
